FAERS Safety Report 19434475 (Version 1)
Quarter: 2021Q2

REPORT INFORMATION
  Report Type: Spontaneous
  Country: US (occurrence: US)
  Receive Date: 20210617
  Receipt Date: 20210617
  Transmission Date: 20210717
  Serious: No
  Sender: FDA-Public Use
  Company Number: US-ROCHE-2635314

PATIENT
  Sex: Female

DRUGS (1)
  1. ACTEMRA [Suspect]
     Active Substance: TOCILIZUMAB
     Indication: JUVENILE IDIOPATHIC ARTHRITIS
     Route: 058
     Dates: start: 20200206

REACTIONS (6)
  - Mouth ulceration [Unknown]
  - Laryngeal pain [Unknown]
  - Tonsillar hypertrophy [Unknown]
  - Erythema [Unknown]
  - Paraesthesia [Unknown]
  - Burning sensation [Unknown]
